FAERS Safety Report 9163105 (Version 1)
Quarter: 2013Q1

REPORT INFORMATION
  Report Type: Spontaneous
  Country: DK (occurrence: None)
  Receive Date: 20130227
  Receipt Date: 20130227
  Transmission Date: 20140127
  Serious: Yes (Other)
  Sender: FDA-Public Use
  Company Number: 2013MA001298

PATIENT
  Age: 87 Year
  Sex: Female

DRUGS (2)
  1. IBUPROFEN ORAL SUSPENSION USP, 100 MG/5 ML (RX) (ALPHARMA) (IBUPROFEN) [Suspect]
     Indication: PAIN
     Route: 048
     Dates: start: 20130131, end: 20130204
  2. XARELTO [Suspect]
     Route: 048
     Dates: start: 20130116, end: 20130204

REACTIONS (3)
  - Gastric haemorrhage [None]
  - Melaena [None]
  - Haemoglobin decreased [None]
